FAERS Safety Report 12692581 (Version 1)
Quarter: 2016Q3

REPORT INFORMATION
  Report Type: Report from Study
  Country: US (occurrence: US)
  Receive Date: 20160829
  Receipt Date: 20160829
  Transmission Date: 20161109
  Serious: No
  Sender: FDA-Public Use
  Company Number: PHEH2016US021371

PATIENT
  Sex: Female

DRUGS (1)
  1. COSENTYX [Suspect]
     Active Substance: SECUKINUMAB
     Indication: PSORIASIS
     Dosage: 300 MG, QMO (Q 28 DAYS)
     Route: 058

REACTIONS (5)
  - Joint swelling [Unknown]
  - Dyspnoea [Unknown]
  - Constipation [Unknown]
  - Poor quality sleep [Unknown]
  - Yawning [Unknown]
